FAERS Safety Report 10621592 (Version 1)
Quarter: 2014Q4

REPORT INFORMATION
  Report Type: Spontaneous
  Country: US (occurrence: None)
  Receive Date: 20141126
  Receipt Date: 20141126
  Transmission Date: 20150529
  Serious: No
  Sender: FDA-Public Use
  Company Number: None

PATIENT
  Age: 28 Year
  Sex: Female
  Weight: 68.04 kg

DRUGS (1)
  1. SAPHRIS [Suspect]
     Active Substance: ASENAPINE MALEATE
     Indication: BIPOLAR DISORDER
     Dosage: 1 TABLET AT NIGH, TAKEN UNDER THE TONGUE
     Route: 060
     Dates: start: 20141111, end: 20141125

REACTIONS (7)
  - Pharyngeal ulceration [None]
  - Mood swings [None]
  - Wheezing [None]
  - Peripheral swelling [None]
  - Contusion [None]
  - Heart rate increased [None]
  - Myalgia [None]

NARRATIVE: CASE EVENT DATE: 20141114
